FAERS Safety Report 18429726 (Version 2)
Quarter: 2021Q3

REPORT INFORMATION
  Report Type: Report from Study
  Country: US (occurrence: US)
  Receive Date: 20201026
  Receipt Date: 20210819
  Transmission Date: 20211014
  Serious: No
  Sender: FDA-Public Use
  Company Number: US-TAKEDA-US202034413

PATIENT
  Sex: Female

DRUGS (1)
  1. VELAGLUCERASE ALFA [Suspect]
     Active Substance: VELAGLUCERASE ALFA
     Indication: GAUCHER^S DISEASE
     Dosage: UNK UNK, Q2WEEKS
     Route: 042
     Dates: start: 20100713

REACTIONS (2)
  - Malaise [Not Recovered/Not Resolved]
  - Joint injury [Not Recovered/Not Resolved]
